FAERS Safety Report 24341765 (Version 1)
Quarter: 2024Q3

REPORT INFORMATION
  Report Type: Spontaneous
  Country: US (occurrence: US)
  Receive Date: 20240920
  Receipt Date: 20240920
  Transmission Date: 20241017
  Serious: No
  Sender: AMGEN
  Company Number: US-AMGEN-USASP2024185143

PATIENT
  Sex: Female

DRUGS (2)
  1. RAVICTI [Suspect]
     Active Substance: GLYCEROL PHENYLBUTYRATE
     Indication: Urea cycle disorder
     Dosage: 5 MILLILITER, TID THREE TIMES DAILY WITH FOOD
     Route: 065
  2. CITRULLINE [Concomitant]
     Active Substance: CITRULLINE
     Dosage: UNK

REACTIONS (1)
  - Inappropriate schedule of product administration [Unknown]
